FAERS Safety Report 8533152-2 (Version None)
Quarter: 2012Q3

REPORT INFORMATION
  Report Type: 
  Country: None (occurrence: None)
  Receive Date: 20120724
  Receipt Date: 20120713
  Transmission Date: 20120928
  Serious: Yes (Other)
  Sender: FDA-Public Use
  Company Number: JP-VERTEX PHARMACEUTICALS INC.-AE-2012-003185

PATIENT
  Age: 63 Year
  Sex: Male

DRUGS (8)
  1. PEG-INTRON [Concomitant]
     Route: 058
     Dates: start: 20120224, end: 20120224
  2. REBETOL [Concomitant]
     Route: 048
     Dates: start: 20120224, end: 20120227
  3. DIOVAN [Concomitant]
     Route: 048
  4. WARFARIN SODIUM [Concomitant]
     Route: 048
  5. TELAVIC (TELAPREVIR) [Suspect]
     Indication: HEPATITIS C
     Route: 048
     Dates: start: 20120224, end: 20120226
  6. LANDEL10_20 [Concomitant]
     Route: 048
  7. LEVOTHYROXINE SODIUM [Concomitant]
     Route: 048
  8. DIGOXIN [Concomitant]
     Route: 048

REACTIONS (3)
  - VOMITING [None]
  - NAUSEA [None]
  - RENAL DISORDER [None]
